FAERS Safety Report 4390847-2 (Version None)
Quarter: 2004Q3

REPORT INFORMATION
  Report Type: 
  Country: None (occurrence: None)
  Receive Date: 20040706
  Receipt Date: 20040706
  Transmission Date: 20050211
  Serious: No
  Sender: FDA-Public Use
  Company Number: None

PATIENT
  Sex: Female
  Weight: 8.12 kg

DRUGS (2)
  1. DURAPREP [Suspect]
     Dosage: CUTANEOUS
     Route: 003
     Dates: start: 20040428, end: 20040428
  2. DIAL SOAP [Suspect]
     Indication: PREOPERATIVE CARE
     Dosage: CUTANEOUS
     Route: 003
     Dates: start: 20040428, end: 20040428

REACTIONS (2)
  - CAUSTIC INJURY [None]
  - EXCORIATION [None]
